FAERS Safety Report 14186202 (Version 1)
Quarter: 2017Q4

REPORT INFORMATION
  Report Type: Spontaneous
  Country: FR (occurrence: FR)
  Receive Date: 20171114
  Receipt Date: 20171114
  Transmission Date: 20180321
  Serious: Yes (Death, Hospitalization)
  Sender: FDA-Public Use
  Company Number: FR-VALIDUS PHARMACEUTICALS LLC-FR-2017VAL001522

PATIENT
  Age: 79 Year
  Sex: Male

DRUGS (5)
  1. FUROSEMIDE. [Suspect]
     Active Substance: FUROSEMIDE
     Indication: ACUTE KIDNEY INJURY
     Dosage: UNK
     Route: 065
     Dates: start: 1978
  2. GENTAMICIN. [Suspect]
     Active Substance: GENTAMICIN
     Indication: EYE INFECTION
  3. GENTAMICIN. [Suspect]
     Active Substance: GENTAMICIN
     Indication: ANTIBIOTIC THERAPY
     Dosage: 160 MG, QD
     Route: 065
     Dates: start: 19780203
  4. CEPHALORIDINE [Suspect]
     Active Substance: CEPHALORIDINE
     Indication: ANTIBIOTIC THERAPY
     Dosage: 6 G, QD
     Route: 065
     Dates: start: 19780203
  5. CEPHALORIDINE [Suspect]
     Active Substance: CEPHALORIDINE
     Indication: EYE INFECTION

REACTIONS (17)
  - Acute kidney injury [Fatal]
  - Oliguria [Fatal]
  - Drug ineffective [Unknown]
  - Gastrointestinal disorder [Not Recovered/Not Resolved]
  - Anuria [Fatal]
  - Blood urea increased [Fatal]
  - Vomiting [Fatal]
  - Nausea [Fatal]
  - Melaena [Fatal]
  - Circulatory collapse [Fatal]
  - Abdominal distension [Not Recovered/Not Resolved]
  - Acute kidney injury [Fatal]
  - Intestinal haemorrhage [Fatal]
  - Haematemesis [Fatal]
  - Decreased appetite [Fatal]
  - Intestinal dilatation [Not Recovered/Not Resolved]
  - Dehydration [Not Recovered/Not Resolved]

NARRATIVE: CASE EVENT DATE: 1978
